FAERS Safety Report 6493568-5 (Version None)
Quarter: 2009Q4

REPORT INFORMATION
  Report Type: 
  Country: None (occurrence: None)
  Receive Date: 20091214
  Receipt Date: 20091207
  Transmission Date: 20100525
  Serious: Yes (Congenital Anomaly)
  Sender: FDA-Public Use
  Company Number: GB-WYE-G05082709

PATIENT

DRUGS (3)
  1. EFFEXOR [Suspect]
     Indication: DEPRESSION
     Dosage: 150MG (FREQUENCY UNKNOWN)
     Route: 064
     Dates: start: 20080101
  2. SERETIDE [Concomitant]
     Indication: ASTHMA
     Route: 064
     Dates: start: 20070101
  3. ALBUTEROL [Concomitant]
     Indication: ASTHMA
     Dosage: 2 DOSAGE FORMS AS NECESSARY
     Route: 064
     Dates: start: 20070101

REACTIONS (2)
  - DRUG EXPOSURE DURING PREGNANCY [None]
  - ENCEPHALOCELE [None]
